FAERS Safety Report 22044462 (Version 2)
Quarter: 2023Q2

REPORT INFORMATION
  Report Type: Report from Study
  Country: CO (occurrence: CO)
  Receive Date: 20230228
  Receipt Date: 20230414
  Transmission Date: 20230721
  Serious: Yes (Life-Threatening, Other)
  Sender: FDA-Public Use
  Company Number: CO-TAKEDA-2021TUS060948

PATIENT
  Age: 31 Year
  Sex: Male
  Weight: 68 kg

DRUGS (6)
  1. ICATIBANT [Suspect]
     Active Substance: ICATIBANT ACETATE
     Indication: Hereditary angioedema
     Dosage: 1 DOSAGE FORM, Q6HR
     Route: 058
     Dates: start: 20210927
  2. ICATIBANT [Suspect]
     Active Substance: ICATIBANT ACETATE
     Indication: Hereditary angioedema
     Dosage: 1 DOSAGE FORM, Q6HR
     Route: 058
     Dates: start: 20210927
  3. ICATIBANT [Suspect]
     Active Substance: ICATIBANT ACETATE
     Dosage: UNK UNK, Q8HR
     Route: 058
     Dates: start: 20210927
  4. ICATIBANT [Suspect]
     Active Substance: ICATIBANT ACETATE
     Dosage: UNK UNK, Q8HR
     Route: 058
     Dates: start: 20210927
  5. DANAZOL [Concomitant]
     Active Substance: DANAZOL
     Indication: Product used for unknown indication
     Dosage: 1 DOSAGE FORM, QD
     Route: 065
  6. DANAZOL [Concomitant]
     Active Substance: DANAZOL
     Dosage: 200 MILLIGRAM, QD
     Route: 065

REACTIONS (5)
  - Suicide attempt [Not Recovered/Not Resolved]
  - Weight increased [Unknown]
  - Depression [Not Recovered/Not Resolved]
  - Asthenia [Not Recovered/Not Resolved]
  - Crying [Not Recovered/Not Resolved]

NARRATIVE: CASE EVENT DATE: 20220218
